FAERS Safety Report 4925707-9 (Version None)
Quarter: 2006Q1

REPORT INFORMATION
  Report Type: 
  Country: None (occurrence: None)
  Receive Date: 20060228
  Receipt Date: 20050127
  Transmission Date: 20060701
  Serious: No
  Sender: FDA-Public Use
  Company Number: US-GLAXOSMITHKLINE-A0542640A

PATIENT
  Age: 31 Year
  Sex: Female

DRUGS (3)
  1. LAMICTAL [Suspect]
     Indication: BIPOLAR DISORDER
     Dosage: 50MG PER DAY
     Route: 048
  2. SEROQUEL [Concomitant]
     Route: 065
  3. GABITRIL [Concomitant]
     Route: 065

REACTIONS (3)
  - ERYTHEMA [None]
  - FACE OEDEMA [None]
  - RASH GENERALISED [None]
